FAERS Safety Report 6538006-9 (Version None)
Quarter: 2010Q1

REPORT INFORMATION
  Report Type: 
  Country: None (occurrence: None)
  Receive Date: 20100112
  Receipt Date: 20100112
  Transmission Date: 20100710
  Serious: Yes (Other)
  Sender: FDA-Public Use
  Company Number: None

PATIENT
  Age: 26 Year
  Sex: Female
  Weight: 108.8633 kg

DRUGS (1)
  1. MIRENA [Suspect]
     Indication: CONTRACEPTION
     Dosage: 20 MCG/DAY LASTS UP TO 5 YEAR INTRA-UTERINE
     Route: 015
     Dates: start: 20090721, end: 20100108

REACTIONS (11)
  - ACNE [None]
  - ANXIETY [None]
  - ARTHRALGIA [None]
  - BACK PAIN [None]
  - DYSMENORRHOEA [None]
  - FATIGUE [None]
  - FEELING ABNORMAL [None]
  - MENORRHAGIA [None]
  - MIGRAINE [None]
  - MOOD SWINGS [None]
  - WEIGHT INCREASED [None]
